FAERS Safety Report 8443474-1 (Version None)
Quarter: 2012Q2

REPORT INFORMATION
  Report Type: 
  Country: None (occurrence: None)
  Receive Date: 20120608
  Receipt Date: 20120523
  Transmission Date: 20120825
  Serious: Yes (Hospitalization)
  Sender: FDA-Public Use
  Company Number: CIO12008920

PATIENT
  Age: 23 Year
  Sex: Female

DRUGS (1)
  1. NYQUIL COUGH RELIEF, CHERRY FLAVOR(ETHANOL 10 %, DEXTROMETHORPHAN HYDR [Suspect]
     Dosage: 9 OZ, 1 ONLY, ORAL
     Route: 048
     Dates: start: 20120522, end: 20120522

REACTIONS (3)
  - SELF INJURIOUS BEHAVIOUR [None]
  - VOMITING [None]
  - INCORRECT DOSE ADMINISTERED [None]
